FAERS Safety Report 4446476-5 (Version None)
Quarter: 2004Q3

REPORT INFORMATION
  Report Type: 
  Country: None (occurrence: None)
  Receive Date: 20040907
  Receipt Date: 20040820
  Transmission Date: 20050211
  Serious: Yes (Hospitalization)
  Sender: FDA-Public Use
  Company Number: 203341

PATIENT
  Age: 43 Year
  Sex: Female
  Weight: 58.9676 kg

DRUGS (2)
  1. AVONEX [Suspect]
     Indication: MULTIPLE SCLEROSIS
  2. PROTONIX [Concomitant]

REACTIONS (2)
  - BALANCE DISORDER [None]
  - VISUAL DISTURBANCE [None]
